FAERS Safety Report 8344750-3 (Version None)
Quarter: 2012Q2

REPORT INFORMATION
  Report Type: 
  Country: None (occurrence: None)
  Receive Date: 20120508
  Receipt Date: 20120425
  Transmission Date: 20120825
  Serious: Yes (Life-Threatening, Hospitalization)
  Sender: FDA-Public Use
  Company Number: FR-ROCHE-1060145

PATIENT
  Sex: Male
  Weight: 102 kg

DRUGS (4)
  1. BENDAMUSTINE [Suspect]
     Indication: B-CELL LYMPHOMA
     Dosage: DATE OF LAST DOSE PRIOR TO SAE 23/MAR/2012
     Route: 042
     Dates: start: 20120322
  2. MABTHERA [Suspect]
     Indication: B-CELL LYMPHOMA
     Dosage: DATE OF LAST DOSE PRIOR TO SAE 23/MAR/2012
     Route: 042
     Dates: start: 20120321
  3. ACEBUTOLOL [Concomitant]
  4. MABTHERA [Suspect]
     Route: 058
     Dates: start: 20120420

REACTIONS (2)
  - BRONCHOSPASM [None]
  - PULMONARY EMBOLISM [None]
